FAERS Safety Report 16997297 (Version 1)
Quarter: 2019Q4

REPORT INFORMATION
  Report Type: Report from Study
  Country: CA (occurrence: CA)
  Receive Date: 20191106
  Receipt Date: 20191106
  Transmission Date: 20200122
  Serious: Yes (Other)
  Sender: FDA-Public Use
  Company Number: CA-ORION CORPORATION ORION PHARMA-TREX2019-5142

PATIENT
  Age: 54 Year
  Sex: Male

DRUGS (4)
  1. STELARA [Concomitant]
     Active Substance: USTEKINUMAB
     Route: 065
  2. COSENTYX [Suspect]
     Active Substance: SECUKINUMAB
     Indication: PSORIASIS
     Route: 058
  3. METHOTREXATE (TRADE NAME UNKNOWN) [Suspect]
     Active Substance: METHOTREXATE
     Indication: PRODUCT USED FOR UNKNOWN INDICATION
     Route: 065
  4. CICLOSPORIN [Suspect]
     Active Substance: CYCLOSPORINE
     Indication: PRODUCT USED FOR UNKNOWN INDICATION
     Route: 065

REACTIONS (7)
  - Dyspnoea [Recovered/Resolved]
  - Dizziness [Recovered/Resolved]
  - Blood pressure diastolic increased [Recovered/Resolved]
  - Dysphagia [Recovered/Resolved]
  - Eating disorder [Recovered/Resolved]
  - Oropharyngeal pain [Recovered/Resolved]
  - Fungal pharyngitis [Recovered/Resolved]
